FAERS Safety Report 8622945-9 (Version None)
Quarter: 2012Q3

REPORT INFORMATION
  Report Type: 
  Country: None (occurrence: None)
  Receive Date: 20120827
  Receipt Date: 20120823
  Transmission Date: 20120928
  Serious: Yes (Death, Hospitalization)
  Sender: FDA-Public Use
  Company Number: PHHY2012CO065282

PATIENT
  Sex: Male

DRUGS (6)
  1. PREDNISOLONE [Concomitant]
     Dosage: 10 MG, PER DAY
  2. AMITRIPTYLINE HYDROCHLORIDE [Concomitant]
     Dosage: 25 MG, PER NIGHT
  3. OMEPRAZOLE [Concomitant]
     Dosage: 20 MG, PER DAY
  4. SANDOSTATIN LAR [Suspect]
     Dosage: 20 MG, UNK
     Route: 030
     Dates: start: 20100101
  5. SANDOSTATIN LAR [Suspect]
     Dosage: 20 MG, UNK
     Route: 030
     Dates: start: 20110101
  6. SANDOSTATIN LAR [Suspect]
     Indication: NEUROENDOCRINE TUMOUR
     Dosage: 20 MG, (INTERMITENT)
     Route: 030
     Dates: start: 20090101

REACTIONS (6)
  - DIHYDROTESTOSTERONE LEVEL [None]
  - DIARRHOEA [None]
  - DEHYDRATION [None]
  - DEATH [None]
  - DECREASED APPETITE [None]
  - UNDERWEIGHT [None]
